FAERS Safety Report 6932993-2 (Version None)
Quarter: 2010Q3

REPORT INFORMATION
  Report Type: 
  Country: None (occurrence: None)
  Receive Date: 20100818
  Receipt Date: 20100818
  Transmission Date: 20110219
  Serious: Yes (Disabling)
  Sender: FDA-Public Use
  Company Number: None

PATIENT
  Age: 54 Year
  Sex: Female
  Weight: 54.4316 kg

DRUGS (2)
  1. PRED FORTE [Suspect]
     Dosage: 1 DROP 4 TIMES-DAY 9-25-08 UNTIL GONE
  2. ZYMAR [Suspect]
     Dosage: 1 DROP 4 TIMES-DAY 9-25-08 - UNTIL GONE

REACTIONS (1)
  - CATARACT [None]
